FAERS Safety Report 20842570 (Version 2)
Quarter: 2022Q3

REPORT INFORMATION
  Report Type: Spontaneous
  Country: US (occurrence: US)
  Receive Date: 20220518
  Receipt Date: 20220926
  Transmission Date: 20221026
  Serious: No
  Sender: FDA-Public Use
  Company Number: US-BRISTOL-MYERS SQUIBB COMPANY-2022-024644

PATIENT
  Age: 67 Year
  Sex: Female
  Weight: 66.68 kg

DRUGS (2)
  1. POMALYST [Suspect]
     Active Substance: POMALIDOMIDE
     Indication: White blood cell count decreased
     Dosage: FREQUENCY: 21D ON 7D OFF
     Route: 048
     Dates: start: 20220401, end: 20220920
  2. POMALYST [Suspect]
     Active Substance: POMALIDOMIDE
     Indication: Plasma cell myeloma

REACTIONS (4)
  - White blood cell count decreased [Unknown]
  - Lipids increased [Unknown]
  - Blood triglycerides increased [Unknown]
  - Intentional product use issue [Unknown]
